FAERS Safety Report 8437922-0 (Version None)
Quarter: 2012Q2

REPORT INFORMATION
  Report Type: 
  Country: None (occurrence: None)
  Receive Date: 20120614
  Receipt Date: 20120515
  Transmission Date: 20120825
  Serious: No
  Sender: FDA-Public Use
  Company Number: US-AMGEN-USASP2012030651

PATIENT
  Sex: Female

DRUGS (4)
  1. PROLIA [Suspect]
     Indication: OSTEOPOROSIS POSTMENOPAUSAL
     Dates: start: 20111101
  2. VITAMIN D [Concomitant]
  3. SYNTHROID [Concomitant]
     Indication: THYROID DISORDER
     Dosage: UNK
  4. SYNTHROID [Concomitant]
     Dosage: UNK

REACTIONS (12)
  - WEIGHT INCREASED [None]
  - BLOOD CHOLESTEROL INCREASED [None]
  - SOMNOLENCE [None]
  - PRURITUS GENERALISED [None]
  - GINGIVAL PAIN [None]
  - BRUXISM [None]
  - ASTHENIA [None]
  - RASH ERYTHEMATOUS [None]
  - DRUG INEFFECTIVE [None]
  - VULVOVAGINAL DRYNESS [None]
  - MICTURITION URGENCY [None]
  - URINE ODOUR ABNORMAL [None]
